FAERS Safety Report 22166414 (Version 1)
Quarter: 2023Q2

REPORT INFORMATION
  Report Type: Other
  Country: JP (occurrence: None)
  Receive Date: 20230403
  Receipt Date: 20230403
  Transmission Date: 20230721
  Serious: Yes (Other)
  Sender: FDA-Public Use
  Company Number: JP-ROCHE-3322942

PATIENT
  Age: 85 Year
  Sex: Female

DRUGS (8)
  1. RITUXAN [Suspect]
     Active Substance: RITUXIMAB
     Indication: Non-Hodgkin^s lymphoma
     Dosage: 3 CYCLES
     Route: 041
     Dates: start: 201611
  2. RITUXAN [Suspect]
     Active Substance: RITUXIMAB
     Route: 041
     Dates: end: 201809
  3. VINCRISTINE SULFATE [Suspect]
     Active Substance: VINCRISTINE SULFATE
     Indication: Non-Hodgkin^s lymphoma
     Dosage: 3 CYCLES
     Route: 065
     Dates: start: 201611
  4. PIRARUBICIN HYDROCHLORIDE [Suspect]
     Active Substance: PIRARUBICIN HYDROCHLORIDE
     Indication: Non-Hodgkin^s lymphoma
     Dosage: 3 CYCLES
     Route: 065
     Dates: start: 201611
  5. CYCLOPHOSPHAMIDE [Suspect]
     Active Substance: CYCLOPHOSPHAMIDE
     Indication: Non-Hodgkin^s lymphoma
     Dosage: 3 CYCLES
     Route: 065
     Dates: start: 201611
  6. PREDNISOLONE [Suspect]
     Active Substance: PREDNISOLONE
     Indication: Non-Hodgkin^s lymphoma
     Dosage: 3 CYCLES
     Route: 065
     Dates: start: 201611
  7. AVELUMAB [Concomitant]
     Active Substance: AVELUMAB
     Dates: start: 201909
  8. DENOSUMAB [Concomitant]
     Active Substance: DENOSUMAB
     Dates: start: 201909

REACTIONS (2)
  - Myelosuppression [Unknown]
  - Cytopenia [Unknown]
